FAERS Safety Report 20549754 (Version 1)
Quarter: 2022Q1

REPORT INFORMATION
  Report Type: Spontaneous
  Country: US (occurrence: US)
  Receive Date: 20220304
  Receipt Date: 20220304
  Transmission Date: 20220424
  Serious: No
  Sender: FDA-Public Use
  Company Number: US-PURDUE PHARMA-USA-2021-0282727

PATIENT
  Sex: Female

DRUGS (1)
  1. BUTRANS [Suspect]
     Active Substance: BUPRENORPHINE
     Indication: Pain
     Dosage: 7.5 MCG/HR, WEEKLY
     Route: 062

REACTIONS (8)
  - Skin haemorrhage [Unknown]
  - Skin irritation [Unknown]
  - Pruritus [Unknown]
  - Urticaria [Unknown]
  - Dry skin [Unknown]
  - Unevaluable event [Unknown]
  - Rash erythematous [Unknown]
  - Dermatitis contact [Unknown]
